FAERS Safety Report 14753766 (Version 2)
Quarter: 2018Q4

REPORT INFORMATION
  Report Type: Spontaneous
  Country: US (occurrence: US)
  Receive Date: 20180412
  Receipt Date: 20181107
  Transmission Date: 20190204
  Serious: No
  Sender: FDA-Public Use
  Company Number: US-PFIZER INC-2018147948

PATIENT
  Age: 40 Year
  Sex: Female
  Weight: 86 kg

DRUGS (6)
  1. LYRICA [Suspect]
     Active Substance: PREGABALIN
     Indication: NEURALGIA
     Dosage: 200 MG, 3X/DAY
     Route: 048
  2. PERCOCET [OXYCODONE HYDROCHLORIDE;PARACETAMOL] [Concomitant]
     Indication: BACK PAIN
     Dosage: UNK (10/325)
  3. TOPAMAX [Concomitant]
     Active Substance: TOPIRAMATE
     Indication: MIGRAINE
  4. LYRICA [Suspect]
     Active Substance: PREGABALIN
     Indication: FIBROMYALGIA
     Dosage: 200 MG, UNK
     Route: 048
     Dates: start: 201008, end: 2010
  5. TOPAMAX [Concomitant]
     Active Substance: TOPIRAMATE
     Indication: NEURALGIA
     Dosage: 200 MG, UNK
  6. LYRICA [Suspect]
     Active Substance: PREGABALIN
     Indication: NEUROPATHY PERIPHERAL
     Dosage: UNK
     Dates: start: 201012

REACTIONS (11)
  - Paraesthesia [Unknown]
  - Intervertebral disc degeneration [Unknown]
  - Weight decreased [Unknown]
  - Swelling face [Unknown]
  - Dehydration [Not Recovered/Not Resolved]
  - Condition aggravated [Unknown]
  - Pain in jaw [Unknown]
  - Intentional product misuse [Unknown]
  - Muscle spasms [Unknown]
  - Malaise [Not Recovered/Not Resolved]
  - Vitamin D decreased [Unknown]

NARRATIVE: CASE EVENT DATE: 2011
